FAERS Safety Report 21299363 (Version 5)
Quarter: 2023Q1

REPORT INFORMATION
  Report Type: Spontaneous
  Country: US (occurrence: US)
  Receive Date: 20220906
  Receipt Date: 20230215
  Transmission Date: 20230418
  Serious: No
  Sender: FDA-Public Use
  Company Number: US-BRISTOL-MYERS SQUIBB COMPANY-2022-100511

PATIENT
  Age: 62 Year
  Sex: Male

DRUGS (6)
  1. POMALYST [Suspect]
     Active Substance: POMALIDOMIDE
     Indication: Plasma cell myeloma
     Route: 048
  2. POMALYST [Suspect]
     Active Substance: POMALIDOMIDE
     Dosage: TAKE 1 CAPSULE BY MOUTH ONCE
     Route: 048
  3. ACYCLOVIR [Concomitant]
     Active Substance: ACYCLOVIR
     Indication: Product used for unknown indication
  4. METFORMIN HYDROCHLORIDE [Concomitant]
     Active Substance: METFORMIN HYDROCHLORIDE
     Indication: Product used for unknown indication
  5. ZOFRAN [Concomitant]
     Active Substance: ONDANSETRON HYDROCHLORIDE
     Indication: Product used for unknown indication
  6. NINLARO [Concomitant]
     Active Substance: IXAZOMIB CITRATE
     Indication: Product used for unknown indication

REACTIONS (7)
  - Constipation [Recovered/Resolved]
  - Pain in extremity [Unknown]
  - Dizziness [Unknown]
  - Faeces discoloured [Recovered/Resolved]
  - Inappropriate schedule of product administration [Unknown]
  - Joint swelling [Unknown]
  - Burning sensation [Unknown]
